FAERS Safety Report 15961669 (Version 1)
Quarter: 2019Q1

REPORT INFORMATION
  Report Type: Spontaneous
  Country: NL (occurrence: NL)
  Receive Date: 20190214
  Receipt Date: 20190214
  Transmission Date: 20190417
  Serious: Yes (Other)
  Sender: FDA-Public Use
  Company Number: NL-LEO PHARMA-316667

PATIENT
  Sex: Female
  Weight: 60 kg

DRUGS (1)
  1. DAIVOBET [Suspect]
     Active Substance: BETAMETHASONE DIPROPIONATE\CALCIPOTRIENE
     Indication: PSORIASIS
     Dosage: 1X/DAG
     Dates: start: 20090101, end: 20181115

REACTIONS (1)
  - Cataract [Recovered/Resolved]
